FAERS Safety Report 8229494 (Version 9)
Quarter: 2013Q3

REPORT INFORMATION
  Report Type: Report from Study
  Country: JP (occurrence: JP)
  Receive Date: 20111104
  Receipt Date: 20130708
  Transmission Date: 20140515
  Serious: Yes (Other)
  Sender: FDA-Public Use
  Company Number: JP-ROCHE-1008931

PATIENT
  Age: 73 Year
  Sex: Female

DRUGS (29)
  1. RANIBIZUMAB [Suspect]
     Indication: AGE-RELATED MACULAR DEGENERATION
     Route: 050
     Dates: start: 20090407
  2. RANIBIZUMAB [Suspect]
     Indication: POLYPOIDAL CHOROIDAL VASCULOPATHY
     Route: 050
     Dates: start: 20090818, end: 20090818
  3. RANIBIZUMAB [Suspect]
     Route: 050
     Dates: start: 20100616
  4. RANIBIZUMAB [Suspect]
     Route: 050
     Dates: start: 20100714
  5. RANIBIZUMAB [Suspect]
     Route: 050
     Dates: start: 20100811
  6. RANIBIZUMAB [Suspect]
     Route: 050
     Dates: start: 20100915
  7. RANIBIZUMAB [Suspect]
     Route: 050
     Dates: start: 20101013
  8. RANIBIZUMAB [Suspect]
     Route: 050
     Dates: start: 20101110
  9. RANIBIZUMAB [Suspect]
     Route: 050
     Dates: start: 20101212
  10. RANIBIZUMAB [Suspect]
     Route: 050
     Dates: start: 20110101
  11. RANIBIZUMAB [Suspect]
     Route: 050
     Dates: start: 20110112
  12. RANIBIZUMAB [Suspect]
     Route: 050
     Dates: start: 20110209
  13. RANIBIZUMAB [Suspect]
     Route: 050
     Dates: start: 20110420
  14. RANIBIZUMAB [Suspect]
     Route: 050
     Dates: start: 20110518
  15. RANIBIZUMAB [Suspect]
     Route: 050
     Dates: start: 20110622
  16. RANIBIZUMAB [Suspect]
     Route: 050
     Dates: start: 20110817
  17. RANIBIZUMAB [Suspect]
     Route: 050
     Dates: start: 20110914
  18. RANIBIZUMAB [Suspect]
     Route: 050
     Dates: start: 20111012
  19. RANIBIZUMAB [Suspect]
     Route: 050
     Dates: start: 20111214
  20. RANIBIZUMAB [Suspect]
     Route: 050
     Dates: start: 20120111
  21. RANIBIZUMAB [Suspect]
     Route: 050
     Dates: start: 20120209
  22. RANIBIZUMAB [Suspect]
     Route: 050
     Dates: start: 20120411
  23. RANIBIZUMAB [Suspect]
     Route: 050
     Dates: start: 20120509
  24. RANIBIZUMAB [Suspect]
     Route: 050
     Dates: start: 20120606
  25. RANIBIZUMAB [Suspect]
     Route: 050
     Dates: start: 20090410
  26. RANIBIZUMAB [Suspect]
     Route: 050
     Dates: start: 20090821
  27. VERTEPORFIN [Suspect]
     Indication: AGE-RELATED MACULAR DEGENERATION
     Route: 042
     Dates: start: 20090410, end: 200908
  28. VERTEPORFIN [Suspect]
     Indication: POLYPOIDAL CHOROIDAL VASCULOPATHY
     Route: 042
     Dates: start: 20090821
  29. GATIFLO [Concomitant]
     Route: 065
     Dates: start: 201006, end: 201206

REACTIONS (6)
  - Retinal detachment [Recovered/Resolved]
  - Chorioretinal atrophy [Unknown]
  - Condition aggravated [Unknown]
  - Exudative retinopathy [Unknown]
  - Polypoidal choroidal vasculopathy [Unknown]
  - Visual acuity reduced [Unknown]
